FAERS Safety Report 14705374 (Version 1)
Quarter: 2018Q2

REPORT INFORMATION
  Report Type: Spontaneous
  Country: FR (occurrence: FR)
  Receive Date: 20180402
  Receipt Date: 20180402
  Transmission Date: 20180711
  Serious: Yes (Hospitalization)
  Sender: FDA-Public Use
  Company Number: FR-JNJFOC-20180340605

PATIENT
  Age: 82 Year
  Sex: Male
  Weight: 74 kg

DRUGS (1)
  1. SPORANOX [Suspect]
     Active Substance: ITRACONAZOLE
     Indication: EOSINOPHILIC BRONCHITIS
     Route: 048
     Dates: start: 201708, end: 20180219

REACTIONS (3)
  - Pulmonary alveolar haemorrhage [Recovering/Resolving]
  - Respiratory distress [Recovered/Resolved]
  - Haemoptysis [Recovered/Resolved]

NARRATIVE: CASE EVENT DATE: 201801
